FAERS Safety Report 13347547 (Version 1)
Quarter: 2017Q1

REPORT INFORMATION
  Report Type: Report from Study
  Country: None (occurrence: BR)
  Receive Date: 20170317
  Receipt Date: 20170317
  Transmission Date: 20170428
  Serious: Yes (Other)
  Sender: FDA-Public Use
  Company Number: BR-ABBVIE-17P-020-1911186-00

PATIENT
  Sex: Female
  Weight: 100 kg

DRUGS (4)
  1. SYNTHROID [Suspect]
     Active Substance: LEVOTHYROXINE SODIUM
     Dosage: DAILY DOSE: UNKNOWN, MORNING / FASTING
     Route: 048
  2. SIMVASTATIN. [Suspect]
     Active Substance: SIMVASTATIN
     Indication: BLOOD CHOLESTEROL
     Route: 065
  3. SYNTHROID [Suspect]
     Active Substance: LEVOTHYROXINE SODIUM
     Indication: HYPOTHYROIDISM
     Route: 065
     Dates: start: 2001
  4. SYNTHROID [Suspect]
     Active Substance: LEVOTHYROXINE SODIUM
     Route: 065

REACTIONS (10)
  - Anaemia [Unknown]
  - Drug dose omission [Unknown]
  - Weight loss poor [Not Recovered/Not Resolved]
  - Haemorrhage [Unknown]
  - Uterine pain [Unknown]
  - Oophorectomy [Unknown]
  - Blood cholesterol abnormal [Not Recovered/Not Resolved]
  - Fallopian tube operation [Unknown]
  - Varicose vein [Unknown]
  - Pain in extremity [Unknown]

NARRATIVE: CASE EVENT DATE: 2004
